FAERS Safety Report 26049791 (Version 2)
Quarter: 2025Q4

REPORT INFORMATION
  Report Type: Spontaneous
  Country: EU (occurrence: EU)
  Receive Date: 20251115
  Receipt Date: 20251119
  Transmission Date: 20260118
  Serious: Yes (Hospitalization)
  Sender: IPSEN BIOPHARMACEUTICALS, INC.
  Company Number: EU-IPSEN Group, Research and Development-2025-28096

PATIENT
  Age: 74 Year
  Sex: Female

DRUGS (1)
  1. DYSPORT [Suspect]
     Active Substance: ABOBOTULINUMTOXINA
     Indication: Product used for unknown indication
     Dates: start: 20251014, end: 20251014

REACTIONS (4)
  - Fatigue [Recovering/Resolving]
  - Dyspnoea at rest [Recovering/Resolving]
  - Eyelid ptosis [Recovering/Resolving]
  - Muscular weakness [Recovering/Resolving]
